FAERS Safety Report 12725414 (Version 1)
Quarter: 2016Q3

REPORT INFORMATION
  Report Type: Spontaneous
  Country: US (occurrence: US)
  Receive Date: 20160908
  Receipt Date: 20160908
  Transmission Date: 20161109
  Serious: Yes (Hospitalization)
  Sender: FDA-Public Use
  Company Number: US-RELYPSA-RLY2016002098

PATIENT
  Sex: Male

DRUGS (2)
  1. VELTASSA [Suspect]
     Active Substance: PATIROMER
     Indication: HYPERKALAEMIA
     Dosage: 8.4 G, QD
     Route: 065
     Dates: start: 201607, end: 20160712
  2. VELTASSA [Suspect]
     Active Substance: PATIROMER
     Dosage: 8.4 G, QD
     Route: 065
     Dates: start: 20160729, end: 20160730

REACTIONS (2)
  - Hypopnoea [Unknown]
  - Blood potassium increased [Unknown]

NARRATIVE: CASE EVENT DATE: 20160712
